FAERS Safety Report 5657628-0 (Version None)
Quarter: 2008Q1

REPORT INFORMATION
  Report Type: 
  Country: None (occurrence: None)
  Receive Date: 20080310
  Receipt Date: 20080226
  Transmission Date: 20080703
  Serious: Yes (Hospitalization, Other)
  Sender: FDA-Public Use
  Company Number: US-ELI_LILLY_AND_COMPANY-US200802005944

PATIENT
  Sex: Female

DRUGS (5)
  1. FORTEO [Suspect]
  2. CAPTOPRIL [Concomitant]
     Indication: BLOOD PRESSURE
  3. ZIAC [Concomitant]
     Indication: BLOOD PRESSURE
  4. HUMIRA [Concomitant]
     Dosage: UNK, WEEKLY (1/W)
  5. METHOTREXATE [Concomitant]

REACTIONS (6)
  - BLOOD ELECTROLYTES DECREASED [None]
  - BLOOD PRESSURE INCREASED [None]
  - CONFUSIONAL STATE [None]
  - DEHYDRATION [None]
  - RHEUMATOID ARTHRITIS [None]
  - URINARY TRACT INFECTION [None]
